FAERS Safety Report 7830556-8 (Version None)
Quarter: 2011Q4

REPORT INFORMATION
  Report Type: 
  Country: None (occurrence: None)
  Receive Date: 20111021
  Receipt Date: 20111012
  Transmission Date: 20120403
  Serious: Yes (Death, Life-Threatening, Hospitalization)
  Sender: FDA-Public Use
  Company Number: US-JNJFOC-20110611913

PATIENT
  Sex: Female
  Weight: 76.2 kg

DRUGS (41)
  1. ETRAVIRINE [Suspect]
     Indication: HIV INFECTION
     Route: 048
     Dates: start: 20110329, end: 20110531
  2. RITONAVIR [Suspect]
     Route: 048
     Dates: start: 20110816, end: 20110904
  3. TRUVADA [Concomitant]
     Route: 048
     Dates: start: 20090922
  4. LOMOTIL [Concomitant]
     Indication: DIARRHOEA
     Route: 048
     Dates: start: 20100222
  5. BACTRIM [Concomitant]
     Route: 048
     Dates: start: 20090918
  6. DARUNAVIR ETHANOLATE [Suspect]
     Route: 048
     Dates: start: 20110329, end: 20110531
  7. ABACAVIR [Suspect]
     Indication: HIV INFECTION
     Dates: start: 20110816
  8. RALTEGRAVIR [Concomitant]
     Route: 048
     Dates: start: 20110329, end: 20110531
  9. SEROQUEL [Concomitant]
     Dates: start: 20110311
  10. LAC-HYDRIN [Concomitant]
     Indication: DRY SKIN
     Route: 061
     Dates: start: 20110617
  11. LAMIVUDINE [Concomitant]
     Indication: HIV INFECTION
     Route: 048
     Dates: start: 20110816
  12. PROMETHAZINE W/ CODEINE [Concomitant]
     Indication: COUGH
  13. MULTI-VITAMINS [Concomitant]
  14. IBUPROFEN [Concomitant]
     Route: 048
     Dates: start: 20070611
  15. PROVENTIL [Concomitant]
     Indication: DYSPNOEA
     Route: 055
     Dates: start: 20040224
  16. METFORMIN HCL [Concomitant]
     Route: 048
     Dates: start: 20110502
  17. ALLEGRA [Concomitant]
     Route: 048
     Dates: start: 20110722
  18. DIOVAN HCT [Concomitant]
     Route: 048
     Dates: start: 20090922
  19. WESTCORT [Concomitant]
     Route: 061
     Dates: start: 20110617
  20. LIPITOR [Concomitant]
     Route: 048
     Dates: start: 20110826
  21. ZITHROMAX [Concomitant]
     Dates: start: 20101123
  22. DARUNAVIR ETHANOLATE [Suspect]
     Indication: HIV INFECTION
     Route: 048
     Dates: start: 20110816, end: 20110904
  23. STROVITE FORTE [Concomitant]
     Route: 048
     Dates: start: 20030821
  24. METHADONE HCL [Concomitant]
     Dates: start: 20110805
  25. ADVAIR DISKUS 100/50 [Concomitant]
     Route: 055
     Dates: start: 20070820
  26. VALTREX [Concomitant]
     Route: 048
     Dates: start: 20091019
  27. STROVITE [Concomitant]
     Route: 048
     Dates: start: 20060707
  28. PERCOCET [Concomitant]
     Dates: start: 20101110
  29. TRUVADA [Concomitant]
     Indication: HIV INFECTION
     Route: 048
     Dates: start: 20110329, end: 20110531
  30. RALTEGRAVIR [Concomitant]
     Indication: HIV INFECTION
     Route: 048
     Dates: start: 20110816, end: 20110904
  31. METHADONE HCL [Concomitant]
     Dates: start: 20090818
  32. DIOVAN HCT [Concomitant]
     Route: 048
     Dates: start: 20110805
  33. AMBIEN [Concomitant]
     Route: 048
     Dates: start: 20091020
  34. PROMETHAZINE W/ CODEINE [Concomitant]
     Indication: UPPER RESPIRATORY TRACT INFECTION
  35. ULTRACET [Concomitant]
  36. RITONAVIR [Suspect]
     Indication: HIV INFECTION
     Route: 048
     Dates: start: 20110329, end: 20110531
  37. ADVAIR DISKUS 100/50 [Concomitant]
     Route: 055
     Dates: start: 20091002
  38. LOTRISONE [Concomitant]
     Dates: start: 20110722
  39. VALSARTAN [Concomitant]
  40. POTASSIUM CHLORIDE [Concomitant]
     Route: 048
     Dates: start: 20091123
  41. NORVASC [Concomitant]
     Route: 048
     Dates: start: 20100921

REACTIONS (5)
  - HEPATIC FAILURE [None]
  - RASH [None]
  - UROSEPSIS [None]
  - RENAL FAILURE ACUTE [None]
  - SEPTIC SHOCK [None]
